FAERS Safety Report 4545023-7 (Version None)
Quarter: 2005Q1

REPORT INFORMATION
  Report Type: 
  Country: None (occurrence: None)
  Receive Date: 20050105
  Receipt Date: 20041228
  Transmission Date: 20050727
  Serious: Yes (Other)
  Sender: FDA-Public Use
  Company Number: US-GLAXOSMITHKLINE-A0538710A

PATIENT
  Sex: Male

DRUGS (2)
  1. CONTAC SEVERE COLD + FLU FORMULA [Suspect]
     Indication: INFLUENZA
     Route: 048
     Dates: start: 19940101, end: 20040101
  2. CONTAC SEVERE COLD + FLU MAXIMUM STRENGTH CAPLETS [Suspect]
     Indication: INFLUENZA
     Route: 048
     Dates: start: 20040101

REACTIONS (4)
  - BENIGN PROSTATIC HYPERPLASIA [None]
  - DIABETES MELLITUS [None]
  - DIABETES MELLITUS NON-INSULIN-DEPENDENT [None]
  - HYPERTENSION [None]
